FAERS Safety Report 7409512-X (Version None)
Quarter: 2011Q2

REPORT INFORMATION
  Report Type: 
  Country: None (occurrence: None)
  Receive Date: 20110412
  Receipt Date: 20110331
  Transmission Date: 20111010
  Serious: Yes (Other)
  Sender: FDA-Public Use
  Company Number: PHHY2011DE27383

PATIENT

DRUGS (2)
  1. CO-DIOVAN [Suspect]
  2. NIFEDIPINE [Concomitant]

REACTIONS (1)
  - PSORIASIS [None]
